FAERS Safety Report 19228119 (Version 2)
Quarter: 2024Q2

REPORT INFORMATION
  Report Type: Spontaneous
  Country: US (occurrence: None)
  Receive Date: 20210506
  Receipt Date: 20240418
  Transmission Date: 20240715
  Serious: No
  Sender: FDA-Public Use
  Company Number: US-ROCHE-2733365

PATIENT
  Sex: Male

DRUGS (4)
  1. ESBRIET [Suspect]
     Active Substance: PIRFENIDONE
     Indication: Purpura non-thrombocytopenic
     Route: 048
     Dates: start: 20201112
  2. ESBRIET [Suspect]
     Active Substance: PIRFENIDONE
     Indication: Purpura non-thrombocytopenic
     Route: 048
     Dates: start: 20201112
  3. FAMOTIDINE [Concomitant]
     Active Substance: FAMOTIDINE
  4. LOSARTAN POTASSIUM [Concomitant]
     Active Substance: LOSARTAN POTASSIUM

REACTIONS (3)
  - Off label use [Unknown]
  - Product dose omission in error [Unknown]
  - No adverse event [Unknown]
